FAERS Safety Report 9788522 (Version 1)
Quarter: 2013Q4

REPORT INFORMATION
  Report Type: Spontaneous
  Country: US (occurrence: US)
  Receive Date: 20131230
  Receipt Date: 20131230
  Transmission Date: 20140711
  Serious: No
  Sender: FDA-Public Use
  Company Number: US-BAYER-2013-151880

PATIENT
  Sex: Male

DRUGS (1)
  1. XOFIGO [Suspect]
     Indication: BONE CANCER METASTATIC
     Dosage: DOSING INFORMATION: THIRD INJECTION (10-DEC-2013)
     Dates: start: 2013

REACTIONS (1)
  - Pain [Not Recovered/Not Resolved]
